FAERS Safety Report 8976711 (Version 1)
Quarter: 2012Q4

REPORT INFORMATION
  Report Type: 
  Country: US (occurrence: US)
  Receive Date: 20121219
  Receipt Date: 20121219
  Transmission Date: 20130627
  Serious: No
  Sender: FDA-Public Use
  Company Number: US-AMGEN-USASP2012056914

PATIENT
  Age: 76 Year
  Sex: Female

DRUGS (3)
  1. PROLIA [Suspect]
     Indication: OSTEOPOROSIS POSTMENOPAUSAL
     Dosage: UNK
     Dates: start: 20120115
  2. FISH OIL [Concomitant]
     Dosage: UNK
  3. CINNAMON                           /01647501/ [Concomitant]
     Dosage: UNK

REACTIONS (3)
  - Jaw disorder [Unknown]
  - Tooth disorder [Unknown]
  - Pain in jaw [Unknown]
